FAERS Safety Report 8462583 (Version 5)
Quarter: 2013Q3

REPORT INFORMATION
  Report Type: Spontaneous
  Country: US (occurrence: US)
  Receive Date: 20120316
  Receipt Date: 20130705
  Transmission Date: 20140515
  Serious: Yes (Hospitalization)
  Sender: FDA-Public Use
  Company Number: US-US-EMD SERONO, INC.-7118106

PATIENT
  Age: 60 Year
  Sex: Female

DRUGS (3)
  1. REBIF [Suspect]
     Indication: MULTIPLE SCLEROSIS
     Route: 058
     Dates: end: 200801
  2. REBIF [Suspect]
     Route: 058
     Dates: start: 20080614, end: 201202
  3. REBIF [Suspect]
     Route: 058
     Dates: start: 201202

REACTIONS (12)
  - Parathyroid tumour benign [Recovered/Resolved]
  - Memory impairment [Recovered/Resolved]
  - Alopecia [Recovered/Resolved]
  - Osteopenia [Unknown]
  - Feeling abnormal [Recovered/Resolved]
  - Pain [Recovered/Resolved]
  - Fatigue [Recovered/Resolved]
  - Chills [Recovered/Resolved]
  - Influenza like illness [Unknown]
  - Injection site infection [Recovered/Resolved]
  - Injection site erythema [Recovered/Resolved]
  - Injection site pain [Unknown]
